FAERS Safety Report 12920732 (Version 1)
Quarter: 2016Q4

REPORT INFORMATION
  Report Type: Spontaneous
  Country: US (occurrence: US)
  Receive Date: 20161107
  Receipt Date: 20161107
  Transmission Date: 20170207
  Serious: No
  Sender: FDA-Public Use
  Company Number: None

PATIENT
  Age: 16 Month
  Sex: Male
  Weight: 12.15 kg

DRUGS (2)
  1. CHILDREN^S ALLEGRA ALLERGY [Suspect]
     Active Substance: FEXOFENADINE HYDROCHLORIDE
     Indication: ECZEMA
     Dosage: ?          QUANTITY:1 DROP(S);?
     Route: 048
  2. AQUAFOR [Concomitant]

REACTIONS (4)
  - Pruritus [None]
  - Poor quality sleep [None]
  - Restless legs syndrome [None]
  - Rash [None]

NARRATIVE: CASE EVENT DATE: 20161106
